FAERS Safety Report 8951121 (Version 1)
Quarter: 2012Q4

REPORT INFORMATION
  Report Type: Spontaneous
  Country: US (occurrence: None)
  Receive Date: 20121129
  Receipt Date: 20121129
  Transmission Date: 20130627
  Serious: Yes (Life-Threatening, Hospitalization)
  Sender: FDA-Public Use
  Company Number: IMP_06089_2012

PATIENT
  Age: 51 Year
  Sex: Female

DRUGS (8)
  1. BACLOFEN [Suspect]
     Indication: PRODUCT USED FOR UNKNOWN INDICATION
     Dosage: (Not the prescribed amount)
  2. CLORAZEPATE DIPOTASSIUM [Concomitant]
  3. HYDROXYZINE [Concomitant]
  4. PAROXETINE [Concomitant]
  5. PHENOBARBITAL [Concomitant]
  6. DIGOXIN [Concomitant]
  7. WARFARIN [Concomitant]
  8. PHENYTOIN [Concomitant]

REACTIONS (5)
  - Coma [None]
  - Brain injury [None]
  - Toxicity to various agents [None]
  - Intentional overdose [None]
  - Suicide attempt [None]
